FAERS Safety Report 16063579 (Version 1)
Quarter: 2019Q1

REPORT INFORMATION
  Report Type: Report from Study
  Country: RU (occurrence: RU)
  Receive Date: 20190312
  Receipt Date: 20190312
  Transmission Date: 20190418
  Serious: Yes (Hospitalization, Other)
  Sender: FDA-Public Use
  Company Number: RU-ASTRAZENECA-2018SF72078

PATIENT
  Age: 67 Year
  Sex: Female
  Weight: 80 kg

DRUGS (8)
  1. OMEPRAZOLE. [Concomitant]
     Active Substance: OMEPRAZOLE
  2. NOLPAZA [Concomitant]
     Active Substance: PANTOPRAZOLE SODIUM
  3. AMLODIPINE [Concomitant]
     Active Substance: AMLODIPINE BESYLATE
  4. TORVACARD [Concomitant]
     Active Substance: ATORVASTATIN CALCIUM
  5. CONCOR [Concomitant]
     Active Substance: BISOPROLOL FUMARATE
  6. ENALAPRIL [Concomitant]
     Active Substance: ENALAPRIL
  7. BRILINTA [Suspect]
     Active Substance: TICAGRELOR
     Indication: MYOCARDIAL INFARCTION
     Route: 048
     Dates: start: 20181015
  8. ATORVASTATIN [Concomitant]
     Active Substance: ATORVASTATIN

REACTIONS (8)
  - Haematuria [Unknown]
  - Hordeolum [Unknown]
  - Contusion [Not Recovered/Not Resolved]
  - Nasopharyngitis [Unknown]
  - Intentional product misuse [Not Recovered/Not Resolved]
  - Epistaxis [Not Recovered/Not Resolved]
  - Pyelonephritis [Unknown]
  - Urine abnormality [Unknown]

NARRATIVE: CASE EVENT DATE: 20181020
